FAERS Safety Report 8881168 (Version 2)
Quarter: 2013Q1

REPORT INFORMATION
  Report Type: Spontaneous
  Country: AR (occurrence: AR)
  Receive Date: 20121031
  Receipt Date: 20130313
  Transmission Date: 20140127
  Serious: Yes (Other)
  Sender: FDA-Public Use
  Company Number: PHHY2012AR098419

PATIENT
  Age: 55 Year
  Sex: Male

DRUGS (2)
  1. EXFORGE [Suspect]
     Indication: BLOOD PRESSURE
     Dosage: 1 DF(160/5MG), DAILY
     Dates: end: 201209
  2. EXFORGE [Suspect]
     Dosage: 320/10MG, UNK

REACTIONS (5)
  - Sexual dysfunction [Not Recovered/Not Resolved]
  - Disturbance in sexual arousal [Unknown]
  - Weight decreased [Unknown]
  - Blood cholesterol increased [Unknown]
  - Hypertension [Unknown]
